FAERS Safety Report 7080330-8 (Version None)
Quarter: 2010Q4

REPORT INFORMATION
  Report Type: 
  Country: None (occurrence: None)
  Receive Date: 20101022
  Receipt Date: 20101008
  Transmission Date: 20110411
  Serious: Yes (Hospitalization)
  Sender: FDA-Public Use
  Company Number: 018069

PATIENT
  Sex: Female

DRUGS (3)
  1. CERTOLIZUMAB PEGOL (CERTOLIZUMAB PEGOL) [Suspect]
     Indication: RHEUMATOID ARTHRITIS
     Dosage: (200 MG 1X/2 WEEKS, NBR OF DOSES: 11 SUBCUTANEOUS)
     Route: 058
     Dates: start: 20100331, end: 20100901
  2. TREXAN /00113801/ [Concomitant]
  3. ACIDUM FOLICUM [Concomitant]

REACTIONS (9)
  - COUGH [None]
  - DYSPHONIA [None]
  - HEARING IMPAIRED [None]
  - NASAL NEOPLASM [None]
  - NASAL SEPTUM DEVIATION [None]
  - NASOPHARYNGITIS [None]
  - OTITIS MEDIA CHRONIC [None]
  - STAPHYLOCOCCAL INFECTION [None]
  - TONSILLAR HYPERTROPHY [None]
